FAERS Safety Report 8770397 (Version 1)
Quarter: 2012Q4

REPORT INFORMATION
  Report Type: 
  Country: FR (occurrence: FR)
  Receive Date: 20120903
  Receipt Date: 20120903
  Transmission Date: 20130627
  Serious: Yes (Hospitalization)
  Sender: FDA-Public Use
  Company Number: FR-ELI_LILLY_AND_COMPANY-FR201208007913

PATIENT
  Age: 51 Year
  Sex: Male

DRUGS (7)
  1. CYMBALTA [Suspect]
     Indication: DEPRESSION
     Dosage: UNK
     Route: 048
     Dates: start: 20120609
  2. INIPOMP [Concomitant]
  3. URBANYL [Concomitant]
  4. XAZAL [Concomitant]
  5. AMOXICILLIN [Concomitant]
  6. MONAZOL [Concomitant]
  7. DEXERYL [Concomitant]

REACTIONS (4)
  - Rash papular [Recovering/Resolving]
  - Hyperthermia [Recovered/Resolved]
  - Skin exfoliation [Recovering/Resolving]
  - Gamma-glutamyltransferase increased [Unknown]
